FAERS Safety Report 4386876-5 (Version None)
Quarter: 2004Q2

REPORT INFORMATION
  Report Type: 
  Country: None (occurrence: None)
  Receive Date: 20040628
  Receipt Date: 20040628
  Transmission Date: 20050107
  Serious: No
  Sender: FDA-Public Use
  Company Number: None

PATIENT
  Sex: Female
  Weight: 61.2356 kg

DRUGS (1)
  1. ABILIFY [Suspect]
     Indication: BIPOLAR DISORDER
     Dosage: BY MOUTH 10 MG AT BEDTIME
     Dates: start: 20040609, end: 20040616

REACTIONS (3)
  - DIZZINESS [None]
  - PYREXIA [None]
  - VOMITING [None]
